FAERS Safety Report 11235381 (Version 1)
Quarter: 2015Q3

REPORT INFORMATION
  Report Type: Spontaneous
  Country: US (occurrence: US)
  Receive Date: 20150702
  Receipt Date: 20150702
  Transmission Date: 20151125
  Serious: Yes (Hospitalization, Other)
  Sender: FDA-Public Use
  Company Number: US-TEVA-574821USA

PATIENT
  Age: 46 Year
  Sex: Female

DRUGS (1)
  1. WARFARIN [Suspect]
     Active Substance: WARFARIN
     Indication: EMBOLISM VENOUS
     Route: 065

REACTIONS (7)
  - International normalised ratio decreased [Unknown]
  - Hysteroscopy [Unknown]
  - Central venous catheterisation [Unknown]
  - Contusion [Unknown]
  - Uterine dilation and curettage [Unknown]
  - Deep vein thrombosis [Unknown]
  - Haemorrhage [Unknown]

NARRATIVE: CASE EVENT DATE: 201411
